FAERS Safety Report 8808453 (Version 2)
Quarter: 2014Q2

REPORT INFORMATION
  Report Type: Spontaneous
  Country: US (occurrence: US)
  Receive Date: 20120926
  Receipt Date: 20131024
  Transmission Date: 20141212
  Serious: No
  Sender: FDA-Public Use
  Company Number: US-PFIZER INC-2012234140

PATIENT
  Age: 52 Year
  Sex: Female

DRUGS (1)
  1. PREMPRO [Suspect]
     Indication: MENOPAUSAL SYMPTOMS
     Dosage: 1 DF , 1X/DAY [0.45/1.5 MG]
     Route: 048
     Dates: start: 201205, end: 201205

REACTIONS (4)
  - Palpitations [Unknown]
  - Night sweats [Unknown]
  - Insomnia [Unknown]
  - Hot flush [Unknown]
